FAERS Safety Report 12763873 (Version 2)
Quarter: 2016Q4

REPORT INFORMATION
  Report Type: Report from Study
  Country: US (occurrence: US)
  Receive Date: 20160920
  Receipt Date: 20161021
  Transmission Date: 20170207
  Serious: Yes (Hospitalization, Other)
  Sender: FDA-Public Use
  Company Number: US-JNJFOC-20160915606

PATIENT
  Age: 71 Year
  Sex: Male
  Weight: 119 kg

DRUGS (3)
  1. PLABOCICLIB [Suspect]
     Active Substance: PALBOCICLIB
     Indication: MANTLE CELL LYMPHOMA
     Dosage: FROM DAY 1-21 PER CYCLE
     Route: 048
     Dates: start: 20160805, end: 20160809
  2. IBRUTINIB [Suspect]
     Active Substance: IBRUTINIB
     Indication: MANTLE CELL LYMPHOMA
     Route: 048
     Dates: start: 20160708, end: 20160809
  3. PLABOCICLIB [Suspect]
     Active Substance: PALBOCICLIB
     Indication: MANTLE CELL LYMPHOMA
     Dosage: DAY 1-21 PER CYCLE
     Route: 048
     Dates: start: 20160708, end: 201607

REACTIONS (4)
  - Confusional state [Recovered/Resolved]
  - Stomatitis [Recovered/Resolved]
  - Nausea [Recovered/Resolved]
  - Rash maculo-papular [Recovered/Resolved]

NARRATIVE: CASE EVENT DATE: 201608
